FAERS Safety Report 9223153 (Version 2)
Quarter: 2013Q2

REPORT INFORMATION
  Report Type: Report from Study
  Country: TH (occurrence: TH)
  Receive Date: 20130410
  Receipt Date: 20130521
  Transmission Date: 20140414
  Serious: Yes (Other)
  Sender: FDA-Public Use
  Company Number: TH-ROCHE-1210965

PATIENT
  Age: 22 Year
  Sex: Male

DRUGS (2)
  1. ALTEPLASE [Suspect]
     Indication: RETINAL HAEMORRHAGE
     Dosage: DOASE: 100MCG/0.1 ML
     Route: 050
  2. PERFLUOROPROPANE [Suspect]
     Indication: RETINAL HAEMORRHAGE
     Dosage: DOSE: 0.3 ML OF 100%
     Route: 050

REACTIONS (1)
  - Retinal detachment [Unknown]
